FAERS Safety Report 22323320 (Version 1)
Quarter: 2023Q2

REPORT INFORMATION
  Report Type: Spontaneous
  Country: CA (occurrence: CA)
  Receive Date: 20230516
  Receipt Date: 20230516
  Transmission Date: 20230721
  Serious: Yes (Other)
  Sender: FDA-Public Use
  Company Number: None

PATIENT
  Sex: Female

DRUGS (21)
  1. MYCOPHENOLATE MOFETIL [Suspect]
     Active Substance: MYCOPHENOLATE MOFETIL
     Indication: Product used for unknown indication
  2. CARBIDOPA\LEVODOPA [Suspect]
     Active Substance: CARBIDOPA\LEVODOPA
     Indication: Renal disorder
  3. ACETAMINOPHEN\OXYCODONE HYDROCHLORIDE [Concomitant]
     Active Substance: ACETAMINOPHEN\OXYCODONE HYDROCHLORIDE
  4. APIXABAN [Concomitant]
     Active Substance: APIXABAN
  5. BUDESONIDE [Concomitant]
     Active Substance: BUDESONIDE
  6. DOCUSATE [Concomitant]
     Active Substance: DOCUSATE
  7. DOXAZOSIN [Concomitant]
     Active Substance: DOXAZOSIN MESYLATE
  8. FAMOTIDINE [Concomitant]
     Active Substance: FAMOTIDINE
  9. FLUTICASONE [Concomitant]
     Active Substance: FLUTICASONE
  10. FUROSEMIDE [Concomitant]
     Active Substance: FUROSEMIDE
  11. HYDROXYCHLOROQUINE [Concomitant]
     Active Substance: HYDROXYCHLOROQUINE
  12. IRBESARTAN [Concomitant]
     Active Substance: IRBESARTAN
  13. LEVOTHYROXINE [Concomitant]
     Active Substance: LEVOTHYROXINE
  14. POLYETHYLENE GLYCOLS [Concomitant]
     Active Substance: POLYETHYLENE GLYCOLS
  15. MONTELUKAST [Concomitant]
     Active Substance: MONTELUKAST SODIUM
  16. OXYCODONE HYDROCHLORIDE [Concomitant]
     Active Substance: OXYCODONE HYDROCHLORIDE
  17. OXYCODONE HYDROCHLORIDE [Concomitant]
     Active Substance: OXYCODONE HYDROCHLORIDE
     Dosage: TABLET (EXTENDED- RELEASE)
  18. PREDNISONE [Concomitant]
     Active Substance: PREDNISONE
  19. RISEDRONATE SODIUM [Concomitant]
     Active Substance: RISEDRONATE SODIUM
  20. ALBUTEROL [Concomitant]
     Active Substance: ALBUTEROL
  21. VITAMIN D [Concomitant]
     Active Substance: VITAMIN D NOS

REACTIONS (4)
  - Decreased appetite [Unknown]
  - Giant cell arteritis [Unknown]
  - Nephropathy [Unknown]
  - Weight decreased [Unknown]
